FAERS Safety Report 4855380-X (Version None)
Quarter: 2005Q4

REPORT INFORMATION
  Report Type: 
  Country: None (occurrence: None)
  Receive Date: 20051125
  Receipt Date: 20041115
  Transmission Date: 20060501
  Serious: Yes (Hospitalization)
  Sender: FDA-Public Use
  Company Number: US-JNJFOC-20041104121

PATIENT
  Age: 42 Year
  Sex: Female

DRUGS (5)
  1. LEVAQUIN [Suspect]
     Indication: INFECTION
     Dosage: 500 MG, IN 1 DAY
  2. ESTRADIOL INJ [Concomitant]
  3. XANAX [Concomitant]
  4. ACETAMINOPHEN [Concomitant]
  5. HCTZ (HYDROCHLOROTHIAZIDE) [Concomitant]

REACTIONS (1)
  - GRAND MAL CONVULSION [None]
